FAERS Safety Report 6015959-9 (Version None)
Quarter: 2008Q4

REPORT INFORMATION
  Report Type: 
  Country: None (occurrence: None)
  Receive Date: 20081219
  Receipt Date: 20081219
  Transmission Date: 20090506
  Serious: Yes (Hospitalization)
  Sender: FDA-Public Use
  Company Number: None

PATIENT
  Age: 64 Year
  Sex: Male
  Weight: 75.7507 kg

DRUGS (16)
  1. GEMCITABINE [Suspect]
     Indication: PANCREATIC CARCINOMA
     Dosage: AS ABOVE
     Dates: start: 20081124
  2. RADIATION 40CGY BID DAYS 1,2,8,9 [Suspect]
     Indication: PANCREATIC CARCINOMA
     Dosage: AS ABOVE
     Dates: start: 20081124
  3. TARCEVA [Suspect]
     Indication: PANCREATIC CARCINOMA
     Dosage: AS ABOVE
     Dates: start: 20081124
  4. PLAVIX [Concomitant]
  5. CRESTOR [Concomitant]
  6. METOPROLOL TARTRATE [Concomitant]
  7. ALTACE [Concomitant]
  8. ZETIA [Concomitant]
  9. ASPIRIN [Concomitant]
  10. FENTYNAL PATCH [Concomitant]
  11. MORPHINE SULFATE [Concomitant]
  12. COMPAZINE [Concomitant]
  13. ZOFRAN [Concomitant]
  14. CREON [Concomitant]
  15. ANTACID TAB [Concomitant]
  16. MOM PRN [Concomitant]

REACTIONS (3)
  - ILEUS [None]
  - SMALL INTESTINAL OBSTRUCTION [None]
  - VOMITING [None]
